FAERS Safety Report 9927954 (Version 1)
Quarter: 2014Q1

REPORT INFORMATION
  Report Type: Spontaneous
  Country: US (occurrence: None)
  Receive Date: 20140226
  Receipt Date: 20140226
  Transmission Date: 20141002
  Serious: Yes (Disabling)
  Sender: FDA-Public Use
  Company Number: None

PATIENT
  Age: 9 Day
  Sex: Male
  Weight: 90.72 kg

DRUGS (1)
  1. CIPROFLAXIN [Suspect]
     Indication: URINARY TRACT INFECTION
     Dosage: 2 PILLS 2 X A DAY ?TWICE DAILY
     Dates: start: 20131020, end: 20131029

REACTIONS (1)
  - Neuropathy peripheral [None]
